FAERS Safety Report 4648033-4 (Version None)
Quarter: 2005Q2

REPORT INFORMATION
  Report Type: 
  Country: None (occurrence: None)
  Receive Date: 20050428
  Receipt Date: 20050118
  Transmission Date: 20051028
  Serious: Yes (Other)
  Sender: FDA-Public Use
  Company Number: US-MERCK-0501USA03074

PATIENT
  Age: 70 Year
  Sex: Male
  Weight: 87 kg

DRUGS (3)
  1. VIOXX [Suspect]
     Indication: ARTHRITIS
     Route: 048
     Dates: start: 20001001, end: 20040430
  2. VIOXX [Suspect]
     Indication: BACK INJURY
     Route: 048
     Dates: start: 20001001, end: 20040430
  3. ASPIRIN [Concomitant]
     Route: 065

REACTIONS (7)
  - ATHEROSCLEROSIS [None]
  - BLOOD CHOLESTEROL INCREASED [None]
  - CARDIAC DISORDER [None]
  - CARDIAC FAILURE CONGESTIVE [None]
  - CAROTID ARTERY STENOSIS [None]
  - HYPERTENSION [None]
  - MYOCARDIAL INFARCTION [None]
